FAERS Safety Report 24196588 (Version 1)
Quarter: 2024Q3

REPORT INFORMATION
  Report Type: Other
  Country: FR (occurrence: FR)
  Receive Date: 20240810
  Receipt Date: 20240810
  Transmission Date: 20241017
  Serious: Yes (Hospitalization, Other)
  Sender: ZYDUS PHARM
  Company Number: None

PATIENT

DRUGS (5)
  1. ACETAMINOPHEN [Suspect]
     Active Substance: ACETAMINOPHEN
     Indication: Poisoning deliberate
     Dosage: 16 DOSAGE FORM, 1 TOTAL
     Route: 048
     Dates: start: 20240608, end: 20240608
  2. MIRTAZAPINE [Suspect]
     Active Substance: MIRTAZAPINE
     Indication: Poisoning deliberate
     Dosage: UNK
     Route: 065
     Dates: start: 20240608, end: 20240608
  3. CODEINE [Suspect]
     Active Substance: CODEINE
     Indication: Poisoning deliberate
     Dosage: 16 DOSAGE FORM, 1 TOTAL
     Route: 065
     Dates: start: 20240608, end: 20240608
  4. VALIUM [Suspect]
     Active Substance: DIAZEPAM
     Indication: Poisoning deliberate
     Dosage: UNK
     Route: 065
     Dates: start: 20240608, end: 20240608
  5. CANNABIS SATIVA SUBSP. INDICA TOP [Concomitant]
     Active Substance: CANNABIS SATIVA SUBSP. INDICA TOP
     Indication: Poisoning deliberate
     Dosage: UNK
     Route: 065

REACTIONS (5)
  - Hepatitis fulminant [Not Recovered/Not Resolved]
  - Hepatic cytolysis [Not Recovered/Not Resolved]
  - Coma [Recovered/Resolved]
  - Poisoning deliberate [Not Recovered/Not Resolved]
  - Intentional overdose [Not Recovered/Not Resolved]

NARRATIVE: CASE EVENT DATE: 20240608
